FAERS Safety Report 21684411 (Version 15)
Quarter: 2023Q1

REPORT INFORMATION
  Report Type: Report from Study
  Country: US (occurrence: US)
  Receive Date: 20221205
  Receipt Date: 20230309
  Transmission Date: 20230417
  Serious: No
  Sender: FDA-Public Use
  Company Number: US-002147023-NVSC2022US281969

PATIENT
  Age: 43 Year
  Sex: Female

DRUGS (4)
  1. COSENTYX [Suspect]
     Active Substance: SECUKINUMAB
     Indication: Product used for unknown indication
     Dosage: 150 MG, QMO
     Route: 030
  2. COSENTYX [Suspect]
     Active Substance: SECUKINUMAB
     Dosage: 150 MG, QMO
     Route: 058
     Dates: start: 20190427
  3. COSENTYX [Suspect]
     Active Substance: SECUKINUMAB
     Dosage: 150 MG/KG
     Route: 065
     Dates: start: 20221222
  4. COSENTYX [Suspect]
     Active Substance: SECUKINUMAB
     Dosage: 300 MILLIGRAM PER MILLILITRE
     Route: 065

REACTIONS (30)
  - Epistaxis [Unknown]
  - Swelling of eyelid [Unknown]
  - Dyspnoea [Unknown]
  - Obstructive airways disorder [Unknown]
  - Pain [Unknown]
  - Swelling [Unknown]
  - Fluid retention [Unknown]
  - Arthralgia [Unknown]
  - Ear haemorrhage [Unknown]
  - Wheezing [Unknown]
  - Visual impairment [Unknown]
  - Ear pain [Unknown]
  - Dysuria [Unknown]
  - Psoriasis [Unknown]
  - Skin exfoliation [Unknown]
  - Skin plaque [Unknown]
  - Skin lesion [Unknown]
  - Gait disturbance [Unknown]
  - Vulvovaginal candidiasis [Unknown]
  - Vulvovaginal swelling [Unknown]
  - Vaginal haemorrhage [Unknown]
  - Vulvovaginal discomfort [Unknown]
  - Condition aggravated [Unknown]
  - Peripheral swelling [Unknown]
  - Pigmentation disorder [Unknown]
  - Vulvovaginal pruritus [Unknown]
  - Herpes zoster [Unknown]
  - Genital rash [Unknown]
  - Incorrect route of product administration [Unknown]
  - Product dose omission issue [Unknown]

NARRATIVE: CASE EVENT DATE: 20221222
